FAERS Safety Report 11801334 (Version 3)
Quarter: 2018Q3

REPORT INFORMATION
  Report Type: Report from Study
  Country: US (occurrence: US)
  Receive Date: 20151204
  Receipt Date: 20180727
  Transmission Date: 20181010
  Serious: Yes (Hospitalization)
  Sender: FDA-Public Use
  Company Number: PHHO2015US019788

PATIENT
  Age: 76 Year
  Sex: Male

DRUGS (2)
  1. ODOMZO [Suspect]
     Active Substance: SONIDEGIB
     Indication: MYELODYSPLASTIC SYNDROME
     Dosage: 200 MG, QD (DAILY FOR 28 DAYS)
     Route: 048
     Dates: start: 20151026
  2. AZACITIDINE. [Suspect]
     Active Substance: AZACITIDINE
     Indication: MYELODYSPLASTIC SYNDROME
     Dosage: 75 MG/M2, QD (DAILY FOR 7 DAYS)
     Route: 058
     Dates: start: 20151026

REACTIONS (5)
  - Blood bilirubin increased [Recovered/Resolved]
  - Sepsis [Unknown]
  - Hyperkalaemia [Unknown]
  - Febrile neutropenia [Recovered/Resolved]
  - Decreased appetite [Unknown]

NARRATIVE: CASE EVENT DATE: 20151121
